FAERS Safety Report 13446036 (Version 1)
Quarter: 2017Q2

REPORT INFORMATION
  Report Type: Spontaneous
  Country: US (occurrence: US)
  Receive Date: 20170417
  Receipt Date: 20170417
  Transmission Date: 20170830
  Serious: Yes (Other)
  Sender: FDA-Public Use
  Company Number: US-DRREDDYS-USA/USA/17/0088595

PATIENT
  Age: 58 Year
  Sex: Male
  Weight: 90.71 kg

DRUGS (2)
  1. LIPITOR [Concomitant]
     Active Substance: ATORVASTATIN CALCIUM
     Indication: PRODUCT USED FOR UNKNOWN INDICATION
     Route: 065
  2. SUMATRIPTAN. [Suspect]
     Active Substance: SUMATRIPTAN
     Indication: HEADACHE
     Route: 048

REACTIONS (9)
  - Blood pressure increased [Unknown]
  - Tremor [Unknown]
  - Nervousness [Unknown]
  - Cold sweat [Unknown]
  - Chest pain [Unknown]
  - Hyperhidrosis [Recovered/Resolved]
  - Axillary pain [Unknown]
  - Peripheral coldness [Unknown]
  - Dry mouth [Unknown]

NARRATIVE: CASE EVENT DATE: 20170402
